FAERS Safety Report 6304687-8 (Version None)
Quarter: 2009Q3

REPORT INFORMATION
  Report Type: 
  Country: None (occurrence: None)
  Receive Date: 20090806
  Receipt Date: 20090804
  Transmission Date: 20100115
  Serious: Yes (Death)
  Sender: FDA-Public Use
  Company Number: SP02501

PATIENT
  Age: 84 Year
  Sex: Male

DRUGS (6)
  1. MOVIPREP [Suspect]
     Indication: BOWEL PREPARATION
     Dosage: ORAL
     Route: 048
     Dates: start: 20090205, end: 20090212
  2. ALDACTONE [Concomitant]
  3. TELMISARTAN [Concomitant]
  4. METOPROLOL SUCCINATE [Concomitant]
  5. NEXIUM [Concomitant]
  6. AUGMENTIN [Concomitant]

REACTIONS (4)
  - BLOOD CALCIUM DECREASED [None]
  - DIALYSIS [None]
  - RENAL FAILURE ACUTE [None]
  - RENAL TUBULAR NECROSIS [None]
